FAERS Safety Report 6167047-9 (Version None)
Quarter: 2009Q2

REPORT INFORMATION
  Report Type: 
  Country: None (occurrence: None)
  Receive Date: 20090424
  Receipt Date: 20090413
  Transmission Date: 20091009
  Serious: Yes (Other)
  Sender: FDA-Public Use
  Company Number: BR-PFIZER INC-2009197204

PATIENT

DRUGS (4)
  1. SUTENT [Suspect]
     Indication: RENAL CANCER
     Dosage: 50 MG, 1X/DAY
     Dates: start: 20090301
  2. LOSARTAN [Concomitant]
     Dosage: UNK
  3. HYDROCHLOROTHIAZIDE [Concomitant]
     Dosage: 25 MG, UNK
  4. ATENOLOL [Concomitant]
     Dosage: 50 MG, 2X/DAY

REACTIONS (11)
  - ANORECTAL DISORDER [None]
  - BLOOD PRESSURE INCREASED [None]
  - DRY SKIN [None]
  - FEEDING DISORDER [None]
  - FEELING HOT [None]
  - HAEMORRHOIDS [None]
  - HAIR DISORDER [None]
  - HEADACHE [None]
  - ORAL DISCOMFORT [None]
  - STARVATION [None]
  - VAGINAL DISORDER [None]
